FAERS Safety Report 12789847 (Version 2)
Quarter: 2016Q4

REPORT INFORMATION
  Report Type: Report from Study
  Country: US (occurrence: US)
  Receive Date: 20160928
  Receipt Date: 20161021
  Transmission Date: 20170207
  Serious: Yes (Other)
  Sender: FDA-Public Use
  Company Number: US-B.I. PHARMACEUTICALS,INC./RIDGEFIELD-2016-BI-34527BP

PATIENT
  Sex: Female

DRUGS (2)
  1. OFEV [Suspect]
     Active Substance: NINTEDANIB
     Route: 048
  2. OFEV [Suspect]
     Active Substance: NINTEDANIB
     Indication: IDIOPATHIC PULMONARY FIBROSIS
     Route: 048
     Dates: start: 20160504

REACTIONS (13)
  - Dyspnoea [Unknown]
  - Vomiting [Unknown]
  - Nausea [Unknown]
  - Drug ineffective [Unknown]
  - Idiopathic pulmonary fibrosis [Unknown]
  - Liver function test abnormal [Unknown]
  - Abdominal discomfort [Unknown]
  - Bile output increased [Unknown]
  - Diarrhoea [Unknown]
  - Adverse drug reaction [Unknown]
  - Headache [Unknown]
  - Liver disorder [Unknown]
  - Productive cough [Unknown]
